FAERS Safety Report 6014645-9 (Version None)
Quarter: 2008Q4

REPORT INFORMATION
  Report Type: 
  Country: None (occurrence: None)
  Receive Date: 20081219
  Receipt Date: 20081010
  Transmission Date: 20090506
  Serious: No
  Sender: FDA-Public Use
  Company Number: A0751344A

PATIENT
  Sex: Male

DRUGS (4)
  1. AVODART [Suspect]
     Indication: BENIGN PROSTATIC HYPERPLASIA
     Dosage: 1CAP PER DAY
     Route: 048
  2. FLOMAX [Concomitant]
  3. LISINOPRIL [Concomitant]
  4. PHENYTOIN [Concomitant]

REACTIONS (3)
  - BLADDER CATHETERISATION [None]
  - DYSURIA [None]
  - URINE FLOW DECREASED [None]
